FAERS Safety Report 14129106 (Version 1)
Quarter: 2017Q4

REPORT INFORMATION
  Report Type: Spontaneous
  Country: US (occurrence: US)
  Receive Date: 20171026
  Receipt Date: 20171026
  Transmission Date: 20180321
  Serious: No
  Sender: FDA-Public Use
  Company Number: US-GLAXOSMITHKLINE-US2017163927

PATIENT
  Sex: Female

DRUGS (1)
  1. EXCEDRIN MIGRAINE [Suspect]
     Active Substance: ACETAMINOPHEN\ASPIRIN\CAFFEINE
     Indication: MIGRAINE
     Dosage: UNK

REACTIONS (4)
  - Abdominal discomfort [Recovering/Resolving]
  - Drug ineffective [Recovering/Resolving]
  - Gastrooesophageal reflux disease [Recovering/Resolving]
  - Condition aggravated [Recovering/Resolving]
